FAERS Safety Report 4941890-3 (Version None)
Quarter: 2006Q1

REPORT INFORMATION
  Report Type: 
  Country: None (occurrence: None)
  Receive Date: 20060307
  Receipt Date: 20060220
  Transmission Date: 20060701
  Serious: Yes (Hospitalization, Other)
  Sender: FDA-Public Use
  Company Number: 2006AL000497

PATIENT
  Age: 63 Year
  Sex: Male

DRUGS (4)
  1. LOVASTATIN [Suspect]
     Dosage: 20 MG;QD;PO
     Route: 048
  2. AMIODARONE HCL [Suspect]
     Dosage: 600 MG;QD;PO
     Route: 048
  3. ASPIRIN [Concomitant]
  4. ROSIGLITAZONE [Concomitant]

REACTIONS (15)
  - ASCITES [None]
  - CHRONIC HEPATITIS [None]
  - CYTOLOGY ABNORMAL [None]
  - GYNAECOMASTIA [None]
  - HEPATIC CIRRHOSIS [None]
  - HEPATIC FIBROSIS [None]
  - HEPATIC NECROSIS [None]
  - HEPATIC NEOPLASM [None]
  - HEPATIC STEATOSIS [None]
  - HEPATOTOXICITY [None]
  - INCORRECT DRUG ADMINISTRATION DURATION [None]
  - OEDEMA PERIPHERAL [None]
  - PORTAL HYPERTENSION [None]
  - SPIDER NAEVUS [None]
  - VENTRICULAR HYPOKINESIA [None]
